FAERS Safety Report 17532978 (Version 3)
Quarter: 2021Q4

REPORT INFORMATION
  Report Type: Spontaneous
  Country: US (occurrence: US)
  Receive Date: 20200312
  Receipt Date: 20211015
  Transmission Date: 20220304
  Serious: Yes (Other)
  Sender: FDA-Public Use
  Company Number: US-GILEAD-2020-0454504

PATIENT
  Age: 58 Year
  Sex: Male

DRUGS (34)
  1. VIREAD [Suspect]
     Active Substance: TENOFOVIR DISOPROXIL FUMARATE
     Indication: HIV infection
     Dosage: UNK
     Route: 048
     Dates: start: 20051205, end: 20130713
  2. TRUVADA [Suspect]
     Active Substance: EMTRICITABINE\TENOFOVIR DISOPROXIL FUMARATE
     Indication: HIV infection
     Dosage: UNK
     Route: 048
     Dates: start: 20041224, end: 20050207
  3. TRUVADA [Suspect]
     Active Substance: EMTRICITABINE\TENOFOVIR DISOPROXIL FUMARATE
     Dosage: UNK
     Route: 048
     Dates: start: 200505, end: 200512
  4. TRUVADA [Suspect]
     Active Substance: EMTRICITABINE\TENOFOVIR DISOPROXIL FUMARATE
     Dosage: UNK
     Route: 048
     Dates: start: 201307, end: 201604
  5. TRUVADA [Suspect]
     Active Substance: EMTRICITABINE\TENOFOVIR DISOPROXIL FUMARATE
     Dosage: UNK
     Route: 048
     Dates: start: 201802
  6. TRUVADA [Suspect]
     Active Substance: EMTRICITABINE\TENOFOVIR DISOPROXIL FUMARATE
     Dosage: UNK
     Route: 065
     Dates: start: 200412, end: 201604
  7. DESCOVY [Concomitant]
     Active Substance: EMTRICITABINE\TENOFOVIR ALAFENAMIDE FUMARATE
  8. KALETRA [Concomitant]
     Active Substance: LOPINAVIR\RITONAVIR
  9. DOCUSATE [Concomitant]
     Active Substance: DOCUSATE
  10. VIAGRA [Concomitant]
     Active Substance: SILDENAFIL CITRATE
  11. ZITHROMAX [Concomitant]
     Active Substance: AZITHROMYCIN DIHYDRATE
  12. DOXYCYCLINE [Concomitant]
     Active Substance: DOXYCYCLINE
  13. NADROLONE [Concomitant]
  14. EMTRIVA [Concomitant]
     Active Substance: EMTRICITABINE
  15. TESTOSTERONE [Concomitant]
     Active Substance: TESTOSTERONE
  16. ACYCLOVIR [Concomitant]
     Active Substance: ACYCLOVIR
  17. BACTROBAN [Concomitant]
     Active Substance: MUPIROCIN\MUPIROCIN CALCIUM
  18. LEVAQUIN [Concomitant]
     Active Substance: LEVOFLOXACIN
  19. TAMIFLU [Concomitant]
     Active Substance: OSELTAMIVIR PHOSPHATE
  20. DAPSONE [Concomitant]
     Active Substance: DAPSONE
  21. ZOLPIDEM [Concomitant]
     Active Substance: ZOLPIDEM TARTRATE
  22. ANDROGEL [Concomitant]
     Active Substance: TESTOSTERONE
  23. PREDNISOLONE [Concomitant]
     Active Substance: PREDNISOLONE
  24. ACETAMINOPHEN AND CODEINE [Concomitant]
     Active Substance: ACETAMINOPHEN\CODEINE PHOSPHATE
  25. LORATADINE [Concomitant]
     Active Substance: LORATADINE
  26. NORVIR [Concomitant]
     Active Substance: RITONAVIR
  27. PREZISTA [Concomitant]
     Active Substance: DARUNAVIR ETHANOLATE
  28. ATORVASTATIN [Concomitant]
     Active Substance: ATORVASTATIN
  29. LISINOPRIL [Concomitant]
     Active Substance: LISINOPRIL
  30. CEPHALEXIN GENERICHEALTH [CEFALEXIN] [Concomitant]
  31. TIVICAY [Concomitant]
     Active Substance: DOLUTEGRAVIR SODIUM
  32. CLARITHROMYCIN [Concomitant]
     Active Substance: CLARITHROMYCIN
  33. LANSOPRAZOLE [Concomitant]
     Active Substance: LANSOPRAZOLE
  34. METRONIDAZOLE [Concomitant]
     Active Substance: METRONIDAZOLE

REACTIONS (10)
  - Chronic kidney disease [Not Recovered/Not Resolved]
  - Osteoporosis [Not Recovered/Not Resolved]
  - Renal failure [Unknown]
  - Bone density decreased [Unknown]
  - Pain [Unknown]
  - Emotional distress [Unknown]
  - Anxiety [Unknown]
  - Anhedonia [Unknown]
  - Economic problem [Unknown]
  - Osteoarthritis [Not Recovered/Not Resolved]

NARRATIVE: CASE EVENT DATE: 20140919
